FAERS Safety Report 20961820 (Version 1)
Quarter: 2022Q2

REPORT INFORMATION
  Report Type: Report from Study
  Country: GB (occurrence: GB)
  Receive Date: 20220615
  Receipt Date: 20220615
  Transmission Date: 20220721
  Serious: Yes (Other)
  Sender: FDA-Public Use
  Company Number: None

PATIENT
  Age: 35 Year
  Sex: Female

DRUGS (2)
  1. FINGOLIMOD [Suspect]
     Active Substance: FINGOLIMOD
     Indication: Multiple sclerosis
     Dosage: 0.5 MG, QD
     Route: 048
     Dates: start: 20210614
  2. DESOGESTREL [Concomitant]
     Active Substance: DESOGESTREL

REACTIONS (16)
  - Dizziness [Unknown]
  - Nasopharyngitis [Unknown]
  - Vertigo [Unknown]
  - Polymenorrhoea [Unknown]
  - Loss of consciousness [Unknown]
  - Nausea [Unknown]
  - Diarrhoea [Unknown]
  - Illness [Not Recovered/Not Resolved]
  - Paraesthesia [Unknown]
  - Seasonal allergy [Unknown]
  - Fatigue [Unknown]
  - Product dose omission issue [Unknown]
  - Gastritis [Not Recovered/Not Resolved]
  - Gastroenteritis [Unknown]
  - Dyspepsia [Not Recovered/Not Resolved]
  - Abdominal discomfort [Unknown]
